FAERS Safety Report 17009976 (Version 7)
Quarter: 2020Q4

REPORT INFORMATION
  Report Type: Spontaneous
  Country: US (occurrence: US)
  Receive Date: 20191108
  Receipt Date: 20201221
  Transmission Date: 20210113
  Serious: No
  Sender: FDA-Public Use
  Company Number: US-PFIZER INC-2019482375

PATIENT
  Age: 86 Year
  Sex: Female
  Weight: 81.09 kg

DRUGS (2)
  1. IBRANCE [Suspect]
     Active Substance: PALBOCICLIB
     Dosage: 75 MG, 1X/DAY, EVERY 28 DAYS
     Route: 048
  2. IBRANCE [Suspect]
     Active Substance: PALBOCICLIB
     Indication: BREAST CANCER FEMALE
     Dosage: 100 MG, 1X/DAY
     Dates: start: 20191122

REACTIONS (6)
  - Alopecia [Unknown]
  - Fatigue [Unknown]
  - Anaemia [Unknown]
  - Weight increased [Unknown]
  - Decreased appetite [Unknown]
  - Blood iron decreased [Unknown]
